FAERS Safety Report 18633576 (Version 1)
Quarter: 2020Q4

REPORT INFORMATION
  Report Type: Report from Study
  Country: NO (occurrence: NO)
  Receive Date: 20201218
  Receipt Date: 20201218
  Transmission Date: 20210114
  Serious: Yes (Hospitalization)
  Sender: FDA-Public Use
  Company Number: NO-ROCHE-2730270

PATIENT
  Age: 77 Year
  Sex: Female
  Weight: 62.5 kg

DRUGS (19)
  1. EZETIMIBE. [Concomitant]
     Active Substance: EZETIMIBE
  2. INCRUSE ELLIPTA [Concomitant]
     Active Substance: UMECLIDINIUM BROMIDE
  3. NATRIUMPIKOSULFAT [Concomitant]
     Indication: CONSTIPATION
     Dosage: 7.5 MG/ML
  4. ATEZOLIZUMAB. [Suspect]
     Active Substance: ATEZOLIZUMAB
     Indication: SMALL CELL LUNG CANCER
     Dosage: 4 COURSES?ON 03/NOV/2020, SHE RECEIVED THE MOST RECENT DOSE OF ATEZOLIZUMAB.
     Route: 042
     Dates: start: 20200901
  5. MESALAZINE [Concomitant]
     Active Substance: MESALAMINE
     Indication: COLITIS ULCERATIVE
  6. MACROGOL [Concomitant]
     Active Substance: POLYETHYLENE GLYCOLS
  7. GLYCERYL TRINITRATE [Concomitant]
     Active Substance: NITROGLYCERIN
  8. PLATINUM [Suspect]
     Active Substance: PLATINUM
     Indication: SMALL CELL LUNG CANCER
     Dosage: ON 29/JUL/2020, SHE RECEIVED THE MOST RECENT DOSE OF PLATINUM.
     Route: 065
     Dates: start: 20200505
  9. PANTOPRAZOLE [Concomitant]
     Active Substance: PANTOPRAZOLE
     Indication: OESOPHAGITIS
  10. KLOPIDOGREL [Concomitant]
  11. METOKLOPRAMID [Concomitant]
  12. SALBUTAMOL [Concomitant]
     Active Substance: ALBUTEROL
     Indication: ASTHMA
  13. ETOPOSIDE. [Suspect]
     Active Substance: ETOPOSIDE
     Indication: SMALL CELL LUNG CANCER
     Dosage: ON 29/JUL/2020, SHE RECEIVED THE MOST RECENT DOSE OF ETOPOSIDE.
     Route: 065
     Dates: start: 20200505
  14. SIMVASTATIN. [Concomitant]
     Active Substance: SIMVASTATIN
  15. LACTULOSE. [Concomitant]
     Active Substance: LACTULOSE
     Dosage: 650 MG/ML
  16. ACETYLCYSTEINE. [Concomitant]
     Active Substance: ACETYLCYSTEINE
  17. KIOVIG [Concomitant]
     Active Substance: HUMAN IMMUNOGLOBULIN G
     Route: 042
     Dates: start: 20201124
  18. RELVAR ELLIPTA [Concomitant]
     Active Substance: FLUTICASONE FUROATE\VILANTEROL TRIFENATATE
     Indication: ASTHMA
     Dosage: 184 MCG/22 MCG
  19. PARACETAMOL [Concomitant]
     Active Substance: ACETAMINOPHEN

REACTIONS (2)
  - Confusional state [Not Recovered/Not Resolved]
  - Dizziness [Not Recovered/Not Resolved]

NARRATIVE: CASE EVENT DATE: 20201112
